FAERS Safety Report 6282883-6 (Version None)
Quarter: 2009Q3

REPORT INFORMATION
  Report Type: 
  Country: None (occurrence: None)
  Receive Date: 20090724
  Receipt Date: 20090710
  Transmission Date: 20100115
  Serious: Yes (Hospitalization)
  Sender: FDA-Public Use
  Company Number: US-BAYER-200923396GPV

PATIENT
  Age: 50 Year
  Sex: Male
  Weight: 61 kg

DRUGS (7)
  1. SORAFENIB [Suspect]
     Indication: METASTATIC RENAL CELL CARCINOMA
     Dosage: TOTAL DAILY DOSE: 800 MG
     Route: 048
     Dates: start: 20090410, end: 20090611
  2. ENALAPRIL MALEATE [Concomitant]
     Indication: HYPERTENSION
     Route: 065
     Dates: start: 20080905
  3. ASPIRIN [Concomitant]
     Indication: MYOCARDIAL ISCHAEMIA
     Route: 065
     Dates: start: 20080905
  4. OMEPRAZOLE [Concomitant]
     Indication: PROPHYLAXIS AGAINST GASTROINTESTINAL ULCER
     Route: 065
     Dates: start: 20080905
  5. TRAMADOL HCL [Concomitant]
     Indication: CHEST PAIN
     Route: 065
     Dates: start: 20090610
  6. CHLORHEXIDINE GLUCONATE [Concomitant]
     Indication: DRY MOUTH
     Dosage: 0-2-2
     Route: 065
     Dates: start: 20090610
  7. VENTOLIN [Concomitant]
     Indication: ASTHMA

REACTIONS (8)
  - ATELECTASIS [None]
  - CHEST WALL ABSCESS [None]
  - COUGH [None]
  - DIARRHOEA [None]
  - DYSPNOEA [None]
  - PLEURAL EFFUSION [None]
  - PYOTHORAX [None]
  - PYREXIA [None]
